FAERS Safety Report 16173037 (Version 2)
Quarter: 2019Q2

REPORT INFORMATION
  Report Type: Spontaneous
  Country: US (occurrence: US)
  Receive Date: 20190409
  Receipt Date: 20190412
  Transmission Date: 20190711
  Serious: No
  Sender: FDA-Public Use
  Company Number: US-PFIZER INC-2019141996

PATIENT
  Sex: Female

DRUGS (1)
  1. CHANTIX [Suspect]
     Active Substance: VARENICLINE TARTRATE
     Dosage: 1 MG, UNK (TAKING PRODUCT FROM  1MG BOX INSTEAD OF THE 0.5MG BOX)

REACTIONS (4)
  - Feeling abnormal [Unknown]
  - Incorrect dose administered [Unknown]
  - Poor quality sleep [Unknown]
  - Insomnia [Unknown]
